FAERS Safety Report 7039745-6 (Version None)
Quarter: 2010Q4

REPORT INFORMATION
  Report Type: 
  Country: None (occurrence: None)
  Receive Date: 20101012
  Receipt Date: 20101004
  Transmission Date: 20110411
  Serious: Yes (Death)
  Sender: FDA-Public Use
  Company Number: GXKR2010GB11222

PATIENT
  Age: 92 Year
  Sex: Female

DRUGS (3)
  1. DOXYCYCLINE (NGX) [Suspect]
     Indication: INFECTION
     Dosage: 100 MG, TOTAL
     Route: 048
     Dates: start: 20090422, end: 20090422
  2. DOXYCYCLINE (NGX) [Interacting]
     Dosage: 50 MG, QD
     Route: 048
     Dates: start: 20090423
  3. LANTUS [Interacting]
     Indication: DIABETES MELLITUS
     Dosage: UNK
     Route: 058
     Dates: start: 20060101

REACTIONS (2)
  - DRUG INTERACTION [None]
  - HYPOGLYCAEMIA [None]
